FAERS Safety Report 4912373-1 (Version None)
Quarter: 2006Q1

REPORT INFORMATION
  Report Type: 
  Country: None (occurrence: None)
  Receive Date: 20060215
  Receipt Date: 20050128
  Transmission Date: 20060701
  Serious: No
  Sender: FDA-Public Use
  Company Number: US-GLAXOSMITHKLINE-A0542871A

PATIENT
  Age: 35 Year
  Sex: Male

DRUGS (3)
  1. VALTREX [Suspect]
     Dosage: 500MG THREE TIMES PER DAY
     Route: 048
  2. PREDNISONE [Concomitant]
  3. CHEMOTHERAPY [Concomitant]

REACTIONS (1)
  - VOMITING [None]
